FAERS Safety Report 4284825-1 (Version None)
Quarter: 2004Q1

REPORT INFORMATION
  Report Type: 
  Country: None (occurrence: None)
  Receive Date: 20040202
  Receipt Date: 20040122
  Transmission Date: 20041129
  Serious: No
  Sender: FDA-Public Use
  Company Number: 04P-066-0248681-00

PATIENT
  Age: 32 Year
  Sex: Male

DRUGS (2)
  1. DEPAKENE [Suspect]
     Indication: EPILEPSY
     Dosage: ORAL
     Route: 048
     Dates: start: 20030820, end: 20031011
  2. OXCARBAZEPINE [Suspect]
     Indication: EPILEPSY
     Dosage: 600 MG, 1 IN 1 D, ORAL
     Route: 048
     Dates: start: 20030920, end: 20031011

REACTIONS (1)
  - DERMATITIS EXFOLIATIVE [None]
